FAERS Safety Report 26174532 (Version 1)
Quarter: 2025Q4

REPORT INFORMATION
  Report Type: Spontaneous
  Country: US (occurrence: None)
  Receive Date: 20251217
  Receipt Date: 20251217
  Transmission Date: 20260118
  Serious: Yes (Disabling)
  Sender: FDA-CTU
  Company Number: None

PATIENT
  Age: 39 Year
  Sex: Female
  Weight: 79.65 kg

DRUGS (2)
  1. NITROFURANTOIN MONOHYDRATE MACROCRYSTALS [Suspect]
     Active Substance: NITROFURANTOIN\NITROFURANTOIN MONOHYDRATE
     Indication: Urinary tract infection
     Dosage: TWICE A DAY ORAL
     Route: 048
     Dates: start: 20251013, end: 20251016
  2. CIPROFLOXACIN [Suspect]
     Active Substance: CIPROFLOXACIN
     Indication: Urinary tract infection
     Dosage: TWICE A DAY ORAL
     Route: 048
     Dates: start: 202510, end: 20251020

REACTIONS (18)
  - Panic attack [None]
  - Anxiety [None]
  - Abdominal discomfort [None]
  - Burning sensation [None]
  - Nausea [None]
  - Malaise [None]
  - Vomiting [None]
  - Insomnia [None]
  - Palpitations [None]
  - Paraesthesia [None]
  - Chest pain [None]
  - Weight decreased [None]
  - Chest discomfort [None]
  - Flat affect [None]
  - Emotional poverty [None]
  - Dry eye [None]
  - Back pain [None]
  - Tendon pain [None]

NARRATIVE: CASE EVENT DATE: 20251015
